FAERS Safety Report 26204439 (Version 1)
Quarter: 2025Q4

REPORT INFORMATION
  Report Type: Other
  Country: US (occurrence: US)
  Receive Date: 20251226
  Receipt Date: 20251226
  Transmission Date: 20260118
  Serious: Yes (Hospitalization)
  Sender: LEITERS COMPOUNDING PHARMACY
  Company Number: US-Leiters Health-2191382

PATIENT
  Age: 48 Year
  Sex: Male
  Weight: 129 kg

DRUGS (1)
  1. SUCCINYLCHOLINE CHLORIDE [Suspect]
     Active Substance: SUCCINYLCHOLINE CHLORIDE
     Indication: General anaesthesia
     Dates: start: 20240419, end: 20240419

REACTIONS (1)
  - Rhabdomyolysis [Recovered/Resolved]
